FAERS Safety Report 20899413 (Version 2)
Quarter: 2022Q3

REPORT INFORMATION
  Report Type: Spontaneous
  Country: US (occurrence: US)
  Receive Date: 20220601
  Receipt Date: 20220706
  Transmission Date: 20221027
  Serious: No
  Sender: FDA-Public Use
  Company Number: US-PFIZER INC-202200766047

PATIENT
  Age: 56 Year
  Sex: Female

DRUGS (1)
  1. NIVESTYM [Suspect]
     Active Substance: FILGRASTIM-AAFI
     Dosage: UNK, [480/0.8, UNKNOWN HOW OFTEN]
     Dates: start: 202203

REACTIONS (1)
  - White blood cell count increased [Unknown]
